FAERS Safety Report 20392574 (Version 1)
Quarter: 2022Q1

REPORT INFORMATION
  Report Type: Spontaneous
  Country: DK (occurrence: DK)
  Receive Date: 20220128
  Receipt Date: 20220128
  Transmission Date: 20220424
  Serious: Yes (Hospitalization)
  Sender: FDA-Public Use
  Company Number: None

PATIENT
  Age: 61 Year
  Sex: Female

DRUGS (2)
  1. PREGABALIN [Suspect]
     Active Substance: PREGABALIN
     Indication: Neuropathy peripheral
     Dosage: 150 MG, 1X/DAY
     Route: 048
     Dates: start: 20200609
  2. PREGABALIN [Suspect]
     Active Substance: PREGABALIN
     Dosage: 150 MG
     Route: 048
     Dates: start: 20210810

REACTIONS (14)
  - Speech disorder [Unknown]
  - Nausea [Unknown]
  - Balance disorder [Unknown]
  - Dizziness [Unknown]
  - Restlessness [Unknown]
  - Hyperaesthesia [Unknown]
  - Tremor [Unknown]
  - Headache [Unknown]
  - Coordination abnormal [Unknown]
  - Tinnitus [Unknown]
  - Arthralgia [Unknown]
  - Burning sensation [Unknown]
  - Oedema peripheral [Unknown]
  - Blood pressure orthostatic [Unknown]

NARRATIVE: CASE EVENT DATE: 20211001
